FAERS Safety Report 6245472-5 (Version None)
Quarter: 2009Q2

REPORT INFORMATION
  Report Type: 
  Country: None (occurrence: None)
  Receive Date: 20090625
  Receipt Date: 20090619
  Transmission Date: 20091009
  Serious: Yes (Death)
  Sender: FDA-Public Use
  Company Number: PHHO2008BR08596

PATIENT
  Sex: Female

DRUGS (34)
  1. CYCLOSPORINE [Suspect]
     Indication: RENAL TRANSPLANT
     Dosage: 250 MG, BID
     Route: 048
     Dates: start: 20030429, end: 20030501
  2. CYCLOSPORINE [Suspect]
     Dosage: 550 MG, QD
     Route: 048
     Dates: start: 20030502, end: 20030502
  3. CYCLOSPORINE [Suspect]
     Dosage: 600 MG, QD
     Route: 048
     Dates: start: 20030503, end: 20030509
  4. CYCLOSPORINE [Suspect]
     Dosage: 500 MG, QD
     Route: 048
     Dates: start: 20030510, end: 20030510
  5. CYCLOSPORINE [Suspect]
     Dosage: 400 MG, QD
     Route: 048
     Dates: start: 20030511, end: 20030511
  6. CYCLOSPORINE [Suspect]
     Dosage: 500 MG, QD
     Route: 048
     Dates: start: 20030512, end: 20030512
  7. CYCLOSPORINE [Suspect]
     Dosage: 400 MG, QD
     Route: 048
     Dates: start: 20030513, end: 20030524
  8. CYCLOSPORINE [Suspect]
     Dosage: 350 MG, QD
     Route: 048
     Dates: start: 20030526, end: 20030526
  9. CYCLOSPORINE [Suspect]
     Dosage: 300 MG, QD
     Route: 048
     Dates: start: 20030527, end: 20030814
  10. CYCLOSPORINE [Suspect]
     Dosage: 200 MG, QD
     Route: 048
     Dates: start: 20030815
  11. CYCLOSPORINE [Suspect]
     Dosage: 75 MG, BID
     Route: 048
     Dates: start: 20041221
  12. MYCOPHENOLATE MOFETIL [Concomitant]
     Indication: RENAL TRANSPLANT
     Dosage: 1.5 G, BID
     Route: 048
     Dates: start: 20030429, end: 20030710
  13. MYCOPHENOLATE MOFETIL [Concomitant]
     Dosage: 1250 MG, BID
     Route: 048
     Dates: start: 20030710, end: 20090710
  14. MYCOPHENOLATE MOFETIL [Concomitant]
     Dosage: 1000 MG, BID
     Route: 048
     Dates: start: 20030711
  15. PREDNISONE [Concomitant]
     Indication: RENAL TRANSPLANT
     Dosage: 30 MG, QD
     Route: 048
     Dates: start: 20030429, end: 20030525
  16. PREDNISONE [Concomitant]
     Dosage: 25 MG, QD
     Route: 048
     Dates: start: 20030527, end: 20030623
  17. PREDNISONE [Concomitant]
     Dosage: 20 MG, QD
     Route: 048
     Dates: start: 20030624, end: 20030710
  18. PREDNISONE [Concomitant]
     Dosage: 15 MG, QD
     Route: 048
     Dates: start: 20030711, end: 20030724
  19. PREDNISONE [Concomitant]
     Dosage: 10 MG, QD
     Route: 048
     Dates: start: 20030725, end: 20030730
  20. PREDNISONE [Concomitant]
     Dosage: 15 MG, QD
     Route: 048
     Dates: start: 20030731, end: 20030804
  21. PREDNISONE [Concomitant]
     Dosage: 10 MG, QD
     Route: 048
     Dates: start: 20030805
  22. BACTRIM [Concomitant]
     Dosage: UNK
     Dates: start: 20030429
  23. RANITIDINE [Concomitant]
     Dosage: UNK
     Dates: start: 20030428
  24. PROPRANOLOL HYDROCHLORIDE [Concomitant]
     Dosage: UNK
     Dates: start: 20030430
  25. CHLORTHALIDONE [Concomitant]
     Dosage: UNK
     Dates: start: 20030504
  26. ACETYLSALICYLIC ACID [Concomitant]
     Dosage: UNK
     Dates: start: 20030522
  27. CAPTOPRIL [Concomitant]
     Dosage: UNK
     Dates: start: 20030522
  28. METHYLPREDNISOLONE [Concomitant]
     Dosage: UNK
     Dates: start: 20030428
  29. IBERIN FOLICO [Concomitant]
     Dosage: UNK
     Dates: start: 20030807
  30. GANCICLOVIR [Concomitant]
     Dosage: UNK
     Dates: start: 20030731, end: 20030815
  31. NIFEDIPINE [Concomitant]
     Dosage: UNK
     Dates: start: 20030427
  32. CEPHALOTIN [Concomitant]
     Dosage: UNK
     Dates: start: 20030428, end: 20030430
  33. CEPHALEXIN [Concomitant]
     Dosage: UNK
     Dates: start: 20030429, end: 20030501
  34. PROPRANOLOL HYDROCHLORIDE [Concomitant]
     Dosage: UNK
     Dates: start: 20030428, end: 20041221

REACTIONS (1)
  - SEPSIS [None]
